FAERS Safety Report 9375834 (Version 1)
Quarter: 2013Q2

REPORT INFORMATION
  Report Type: Spontaneous
  Country: GB (occurrence: GB)
  Receive Date: 20130628
  Receipt Date: 20130628
  Transmission Date: 20140414
  Serious: Yes (Other)
  Sender: FDA-Public Use
  Company Number: GB-WATSON-2013-11754

PATIENT
  Age: 34 Year
  Sex: Female

DRUGS (3)
  1. PROPRANOLOL [Suspect]
     Indication: TACHYCARDIA
     Dosage: 10 MG, TID
     Route: 065
  2. AUGMENTIN /00756801/ [Suspect]
     Indication: NIPPLE INFECTION
     Dosage: 375 MG, TID
     Route: 065
     Dates: start: 20130530, end: 201306
  3. ALOE VERA LEAF [Suspect]
     Indication: PRODUCT USED FOR UNKNOWN INDICATION
     Dosage: 1 DF, DAILY
     Route: 065

REACTIONS (4)
  - Hypertension [Recovering/Resolving]
  - Headache [Recovering/Resolving]
  - Dizziness [Unknown]
  - Asthenia [Unknown]
